FAERS Safety Report 8318347-5 (Version None)
Quarter: 2012Q2

REPORT INFORMATION
  Report Type: 
  Country: None (occurrence: None)
  Receive Date: 20120427
  Receipt Date: 20120316
  Transmission Date: 20120825
  Serious: No
  Sender: FDA-Public Use
  Company Number: US-ROCHE-GNE300792

PATIENT
  Sex: Female

DRUGS (16)
  1. METFORMIN HCL [Concomitant]
     Indication: TYPE 2 DIABETES MELLITUS
     Dosage: UNK
  2. ASMANEX TWISTHALER [Concomitant]
     Indication: ASTHMA
     Dosage: UNK
  3. OMALIZUMAB [Suspect]
     Dates: start: 20100201
  4. OMALIZUMAB [Suspect]
     Dates: start: 20100301
  5. ALLEGRA [Concomitant]
     Indication: ASTHMA
     Dosage: UNK
  6. XOPENEX [Concomitant]
     Indication: ASTHMA
     Dosage: UNK
  7. LUPRON [Concomitant]
     Indication: IN VITRO FERTILISATION
  8. ALBUTEROL [Concomitant]
     Indication: ASTHMA
     Dosage: UNK
  9. SYMBICORT [Concomitant]
     Indication: ASTHMA
     Dosage: UNK
  10. VITAMIN AND MINERAL PRENATAL SUPPLEMENT W/ FOLIC ACID CAP [Concomitant]
     Indication: PREGNANCY
     Dosage: UNK
  11. FOLLISTIM [Concomitant]
     Indication: IN VITRO FERTILISATION
  12. OMALIZUMAB [Suspect]
     Indication: ASTHMA
     Dosage: 150 MG, Q4W
     Route: 058
  13. OMALIZUMAB [Suspect]
     Dates: start: 20100101
  14. OMALIZUMAB [Suspect]
     Dates: start: 20100401
  15. PROMETRIUM [Concomitant]
     Indication: PREGNANCY
  16. SINGULAIR [Concomitant]
     Indication: ASTHMA
     Dosage: UNK

REACTIONS (1)
  - MATERNAL EXPOSURE DURING PREGNANCY [None]
